FAERS Safety Report 8818056 (Version 1)
Quarter: 2012Q4

REPORT INFORMATION
  Report Type: 
  Country: US (occurrence: US)
  Receive Date: 20121001
  Receipt Date: 20121001
  Transmission Date: 20130627
  Serious: No
  Sender: FDA-Public Use
  Company Number: US-009507513-1208USA008326

PATIENT

DRUGS (1)
  1. DULERA [Suspect]
     Dosage: UNK
     Dates: start: 2012

REACTIONS (1)
  - Laryngitis [Unknown]
